FAERS Safety Report 9596227 (Version 1)
Quarter: 2013Q4

REPORT INFORMATION
  Report Type: Spontaneous
  Country: US (occurrence: US)
  Receive Date: 20131004
  Receipt Date: 20131004
  Transmission Date: 20140711
  Serious: Yes (Death)
  Sender: FDA-Public Use
  Company Number: US-ACTELION-A-US2013-89047

PATIENT
  Age: 52 Year
  Sex: Female

DRUGS (11)
  1. VELETRI [Suspect]
     Indication: PULMONARY ARTERIAL HYPERTENSION
     Dosage: 25 NG/KG, PER MIN
     Route: 042
     Dates: start: 20120118, end: 20130912
  2. LETAIRIS [Concomitant]
  3. COUMADIN [Concomitant]
  4. TADALAFIL [Concomitant]
  5. FUROSEMIDE [Concomitant]
  6. DIGOXIN [Concomitant]
  7. AZATHIOPRINE [Concomitant]
  8. CITALOPRAM [Concomitant]
  9. INSULIN [Concomitant]
  10. RANITIDINE [Concomitant]
  11. IRON SULFATE [Concomitant]

REACTIONS (1)
  - Death [Fatal]
